FAERS Safety Report 5358037-4 (Version None)
Quarter: 2007Q2

REPORT INFORMATION
  Report Type: 
  Country: None (occurrence: None)
  Receive Date: 20070530
  Receipt Date: 20061018
  Transmission Date: 20071010
  Serious: Yes (Hospitalization)
  Sender: FDA-Public Use
  Company Number: US200606001640

PATIENT
  Age: 29 Year
  Sex: Male
  Weight: 122.4 kg

DRUGS (8)
  1. ZYPREXA [Suspect]
     Dosage: SEE IMAGE
     Dates: start: 20000101, end: 20010601
  2. ZYPREXA [Suspect]
     Dosage: SEE IMAGE
     Dates: start: 20010701, end: 20020401
  3. ZYPREXA [Suspect]
     Dosage: SEE IMAGE
     Dates: start: 20020401, end: 20020401
  4. ZYPREXA [Suspect]
     Dosage: SEE IMAGE
     Dates: start: 20020501, end: 20030401
  5. LITHIUM CARBONATE [Concomitant]
  6. PAROXETINE [Concomitant]
  7. SERTRALINE [Concomitant]
  8. LISINOPRIL [Concomitant]

REACTIONS (6)
  - BLOOD TRIGLYCERIDES INCREASED [None]
  - CHEST PAIN [None]
  - DIABETES MELLITUS [None]
  - GLYCOSURIA [None]
  - HYPERTENSION [None]
  - POLYURIA [None]
